FAERS Safety Report 10094628 (Version 1)
Quarter: 2014Q2

REPORT INFORMATION
  Report Type: Spontaneous
  Country: US (occurrence: US)
  Receive Date: 20140422
  Receipt Date: 20140422
  Transmission Date: 20141212
  Serious: No
  Sender: FDA-Public Use
  Company Number: US-B.I. PHARMACEUTICALS,INC./RIDGEFIELD-2014-BI-16718BP

PATIENT
  Sex: Female
  Weight: 77 kg

DRUGS (11)
  1. SPIRIVA [Suspect]
     Indication: CHRONIC OBSTRUCTIVE PULMONARY DISEASE
     Dosage: 18 MCG
     Route: 055
     Dates: start: 2009
  2. AMLOPIDINE [Concomitant]
     Indication: HYPERTENSION
     Dosage: 5 MG
     Route: 048
  3. AMYLTRIPTILNE [Concomitant]
     Indication: SLEEP DISORDER
     Dosage: 50 MG
     Route: 048
  4. CALCIUM + D [Concomitant]
     Route: 048
  5. CLORAZETATE [Concomitant]
     Indication: SLEEP DISORDER
     Dosage: 15 MG
     Route: 048
  6. LEXAPRO [Concomitant]
     Indication: DEPRESSION
     Dosage: 10 MG
     Route: 048
  7. LASIX [Concomitant]
     Indication: JOINT SWELLING
     Dosage: 20 MG
     Route: 048
  8. LEVOTHYROXINE [Concomitant]
     Indication: HYPOTHYROIDISM
     Dosage: 175 MCG
     Route: 048
  9. FLASH EASE [Concomitant]
     Indication: MENOPAUSE
     Route: 048
  10. OMEPRAZOLE [Concomitant]
     Indication: GASTROOESOPHAGEAL REFLUX DISEASE
     Dosage: 20 MG
     Route: 048
  11. PRIMIDONE [Concomitant]
     Indication: TREMOR
     Dosage: 125 MG
     Route: 048

REACTIONS (1)
  - Dementia Alzheimer^s type [Not Recovered/Not Resolved]
